FAERS Safety Report 14675603 (Version 1)
Quarter: 2018Q1

REPORT INFORMATION
  Report Type: Spontaneous
  Country: US (occurrence: US)
  Receive Date: 20180323
  Receipt Date: 20180323
  Transmission Date: 20180509
  Serious: No
  Sender: FDA-Public Use
  Company Number: US-ASTRAZENECA-2018SE25918

PATIENT
  Age: 26088 Day
  Sex: Male
  Weight: 87.5 kg

DRUGS (3)
  1. CRESTOR [Suspect]
     Active Substance: ROSUVASTATIN CALCIUM
     Indication: MYOCARDIAL INFARCTION
     Route: 048
     Dates: start: 20091122, end: 20180101
  2. ADVAIR HFA [Concomitant]
     Active Substance: FLUTICASONE PROPIONATE\SALMETEROL XINAFOATE
     Indication: ASTHMA
     Route: 055
     Dates: start: 1979
  3. CRESTOR [Suspect]
     Active Substance: ROSUVASTATIN CALCIUM
     Indication: MYOCARDIAL INFARCTION
     Dosage: 10 MG AT NIGHT (GENERIC)
     Route: 065
     Dates: start: 20180101

REACTIONS (5)
  - Product substitution issue [Unknown]
  - Eye disorder [Unknown]
  - Muscle spasms [Not Recovered/Not Resolved]
  - Macular degeneration [Unknown]
  - Insurance issue [Unknown]

NARRATIVE: CASE EVENT DATE: 20100507
